FAERS Safety Report 12311021 (Version 1)
Quarter: 2016Q2

REPORT INFORMATION
  Report Type: Spontaneous
  Country: US (occurrence: US)
  Receive Date: 20160427
  Receipt Date: 20160427
  Transmission Date: 20160815
  Serious: No
  Sender: FDA-Public Use
  Company Number: US-BAUSCH-BL-2016-006612

PATIENT
  Age: 74 Year
  Sex: Female
  Weight: 73.55 kg

DRUGS (1)
  1. PROLENSA [Suspect]
     Active Substance: BROMFENAC SODIUM
     Indication: INFLAMMATION
     Dosage: INSTILLED 1 DROP IN THE LEFT EYE ONCE DAILY
     Route: 047
     Dates: start: 20160228

REACTIONS (1)
  - Eye irritation [Not Recovered/Not Resolved]

NARRATIVE: CASE EVENT DATE: 20160228
